FAERS Safety Report 7494516-1 (Version None)
Quarter: 2011Q2

REPORT INFORMATION
  Report Type: 
  Country: None (occurrence: None)
  Receive Date: 20110520
  Receipt Date: 20110511
  Transmission Date: 20111010
  Serious: Yes (Hospitalization, Other)
  Sender: FDA-Public Use
  Company Number: CA-ASTRAZENECA-2011SE29209

PATIENT
  Age: 66 Year
  Sex: Female

DRUGS (2)
  1. CRESTOR [Suspect]
     Route: 048
     Dates: start: 20110501
  2. CRESTOR [Suspect]
     Indication: HYPERCHOLESTEROLAEMIA
     Route: 048
     Dates: start: 20070101

REACTIONS (11)
  - MUSCLE SPASMS [None]
  - PHARYNGEAL OEDEMA [None]
  - PARAESTHESIA ORAL [None]
  - URTICARIA [None]
  - MYALGIA [None]
  - PRURITUS GENERALISED [None]
  - STENT PLACEMENT [None]
  - LIP SWELLING [None]
  - HYPERTENSION [None]
  - GAIT DISTURBANCE [None]
  - RASH VESICULAR [None]
